FAERS Safety Report 5575945-X (Version None)
Quarter: 2007Q4

REPORT INFORMATION
  Report Type: 
  Country: None (occurrence: None)
  Receive Date: 20071130
  Receipt Date: 20070807
  Transmission Date: 20080405
  Serious: No
  Sender: FDA-Public Use
  Company Number: US200708001757

PATIENT
  Age: 72 Year
  Sex: Male

DRUGS (4)
  1. BYETTA [Suspect]
     Indication: TYPE 2 DIABETES MELLITUS
     Dosage: 5 UG, EACH EVENING, SUBCUTANEOUS
     Route: 058
     Dates: start: 20070803
  2. METFORMIN HCL [Concomitant]
  3. MAALOX PLUS [Concomitant]
  4. ROLAIDS [Concomitant]

REACTIONS (4)
  - DECREASED APPETITE [None]
  - ERUCTATION [None]
  - NAUSEA [None]
  - STOMACH DISCOMFORT [None]
